FAERS Safety Report 18481237 (Version 2)
Quarter: 2024Q1

REPORT INFORMATION
  Report Type: Spontaneous
  Country: TR (occurrence: TR)
  Receive Date: 20201109
  Receipt Date: 20240122
  Transmission Date: 20240410
  Serious: Yes (Other)
  Sender: FDA-Public Use
  Company Number: TR-NOVARTISPH-NVSC2020TR296582

PATIENT
  Age: 50 Year
  Sex: Male

DRUGS (2)
  1. TEGRETOL [Suspect]
     Active Substance: CARBAMAZEPINE
     Indication: Epilepsy
     Dosage: UNK
     Route: 065
     Dates: start: 1993
  2. TRILEPTAL [Suspect]
     Active Substance: OXCARBAZEPINE
     Indication: Epilepsy
     Dosage: UNK (4,5 TABLETS)
     Route: 065

REACTIONS (4)
  - Neoplasm progression [Unknown]
  - Seizure [Unknown]
  - Product supply issue [Unknown]
  - Drug ineffective [Unknown]
